FAERS Safety Report 9741700 (Version 3)
Quarter: 2014Q1

REPORT INFORMATION
  Report Type: Report from Study
  Country: CA (occurrence: CA)
  Receive Date: 20131210
  Receipt Date: 20140306
  Transmission Date: 20141002
  Serious: Yes (Hospitalization)
  Sender: FDA-Public Use
  Company Number: CA-JNJFOC-20131203514

PATIENT
  Sex: Female
  Weight: 49.9 kg

DRUGS (1)
  1. SIMPONI [Suspect]
     Indication: RHEUMATOID ARTHRITIS
     Route: 058
     Dates: start: 20110520, end: 20140114

REACTIONS (4)
  - Throat cancer [Unknown]
  - Pneumonia [Unknown]
  - Urinary tract infection [Unknown]
  - Fall [Unknown]
